FAERS Safety Report 7457862-3 (Version None)
Quarter: 2011Q2

REPORT INFORMATION
  Report Type: 
  Country: None (occurrence: None)
  Receive Date: 20110504
  Receipt Date: 20110421
  Transmission Date: 20111010
  Serious: Yes (Hospitalization, Other)
  Sender: FDA-Public Use
  Company Number: PHFR2005IE03374

PATIENT
  Sex: Female

DRUGS (6)
  1. ALIMTA [Concomitant]
     Indication: METASTASES TO BONE
     Dosage: UNK DF, UNK
  2. CHEMOTHERAPEUTICS,OTHER [Concomitant]
     Indication: NON-SMALL CELL LUNG CANCER
     Dosage: UNK DF, UNK
     Route: 065
     Dates: end: 20101001
  3. CLOZARIL [Suspect]
     Indication: SCHIZOPHRENIA
     Dosage: 425 MG, UNK
     Route: 048
     Dates: start: 20040413
  4. VALPROATE SODIUM [Concomitant]
     Dosage: UNK DF, UNK
  5. CITALOPRAM [Concomitant]
     Indication: DEPRESSION
     Dosage: 60 MG, UNK
     Route: 048
     Dates: start: 20030101
  6. PROPRANOLOL [Concomitant]
     Indication: ANXIETY
     Dosage: 45 MG, UNK
     Route: 048
     Dates: start: 20020101

REACTIONS (7)
  - THROMBOCYTOPENIA [None]
  - NEUTROPHIL COUNT DECREASED [None]
  - CONVULSION [None]
  - DYSPNOEA [None]
  - NON-SMALL CELL LUNG CANCER [None]
  - BRAIN NEOPLASM [None]
  - WHITE BLOOD CELL COUNT DECREASED [None]
